FAERS Safety Report 6781252-X (Version None)
Quarter: 2010Q2

REPORT INFORMATION
  Report Type: 
  Country: None (occurrence: None)
  Receive Date: 20100621
  Receipt Date: 20100607
  Transmission Date: 20101027
  Serious: Yes (Hospitalization)
  Sender: FDA-Public Use
  Company Number: PHFR2010IE00930

PATIENT
  Sex: Male

DRUGS (6)
  1. CLOZARIL [Suspect]
     Indication: SCHIZOPHRENIA
     Dosage: 275MG
     Route: 048
     Dates: start: 20030731
  2. DIOVAN [Concomitant]
     Dosage: 80MG
     Route: 048
  3. OMEPRAZOLE [Concomitant]
     Dosage: 20MG
     Route: 048
  4. CRESTOR [Concomitant]
     Dosage: 5MG
     Route: 048
  5. LEXAPRO [Concomitant]
     Dosage: 20MG
     Route: 048
  6. RIFATER [Concomitant]
     Dosage: 300MG
     Route: 048

REACTIONS (3)
  - COUGH [None]
  - NIGHT SWEATS [None]
  - TUBERCULOSIS [None]
